FAERS Safety Report 7133265-6 (Version None)
Quarter: 2010Q4

REPORT INFORMATION
  Report Type: 
  Country: None (occurrence: None)
  Receive Date: 20101202
  Receipt Date: 20101119
  Transmission Date: 20110411
  Serious: Yes (Hospitalization, Other)
  Sender: FDA-Public Use
  Company Number: US-ELI_LILLY_AND_COMPANY-US201006006835

PATIENT
  Sex: Female

DRUGS (1)
  1. FORTEO [Suspect]
     Indication: OSTEOPOROSIS
     Dosage: 20 UG, DAILY (1/D)
     Route: 065

REACTIONS (6)
  - DECREASED APPETITE [None]
  - FALL [None]
  - MEMORY IMPAIRMENT [None]
  - NAUSEA [None]
  - TRANSIENT ISCHAEMIC ATTACK [None]
  - VOMITING [None]
